FAERS Safety Report 9029872 (Version 1)
Quarter: 2013Q1

REPORT INFORMATION
  Report Type: Spontaneous
  Country: SE (occurrence: SE)
  Receive Date: 20130124
  Receipt Date: 20130124
  Transmission Date: 20140127
  Serious: Yes (Hospitalization)
  Sender: FDA-Public Use
  Company Number: SE-TEVA-382273USA

PATIENT
  Sex: Female

DRUGS (7)
  1. TREANDA [Suspect]
     Indication: LUNG NEOPLASM MALIGNANT
     Route: 042
     Dates: start: 201209
  2. MABTHERA [Suspect]
     Indication: PRODUCT USED FOR UNKNOWN INDICATION
     Dates: start: 201202
  3. AZARGA [Concomitant]
  4. SOBRIL [Concomitant]
  5. IMOVANE [Concomitant]
  6. FLUNITRAZEPAM [Concomitant]
  7. TIMOLOL [Concomitant]

REACTIONS (2)
  - Leukocytosis [Recovered/Resolved]
  - Dyspnoea [Not Recovered/Not Resolved]
